FAERS Safety Report 24773765 (Version 7)
Quarter: 2025Q2

REPORT INFORMATION
  Report Type: Report from Study
  Country: US (occurrence: US)
  Receive Date: 20241225
  Receipt Date: 20250403
  Transmission Date: 20250716
  Serious: No
  Sender: SANDOZ
  Company Number: US-SANDOZ-SDZ2024US105080

PATIENT
  Age: 14 Year
  Sex: Male

DRUGS (8)
  1. OMNITROPE [Suspect]
     Active Substance: SOMATROPIN
     Dosage: 1.5 MG ONCE DAILY
     Route: 058
     Dates: start: 20241219, end: 20241226
  2. OMNITROPE [Suspect]
     Active Substance: SOMATROPIN
     Dosage: 1.5 MG ONCE DAILY
     Route: 058
     Dates: start: 20241219, end: 20241226
  3. OMNITROPE [Suspect]
     Active Substance: SOMATROPIN
     Indication: Hypopituitarism
     Dosage: 1.5 MG, QD
     Route: 058
     Dates: start: 20241218
  4. OMNITROPE [Suspect]
     Active Substance: SOMATROPIN
     Indication: Hypopituitarism
     Dosage: 1.5 MG, QD
     Route: 058
     Dates: start: 20241218
  5. OMNITROPE [Suspect]
     Active Substance: SOMATROPIN
     Dosage: 1.5 MG ONCE DAILY
     Route: 058
     Dates: start: 20250202, end: 20250202
  6. OMNITROPE [Suspect]
     Active Substance: SOMATROPIN
     Dosage: 1.5 MG ONCE DAILY
     Route: 058
     Dates: start: 20250202, end: 20250202
  7. OMNITROPE [Suspect]
     Active Substance: SOMATROPIN
     Route: 065
  8. OMNITROPE [Suspect]
     Active Substance: SOMATROPIN
     Route: 065

REACTIONS (8)
  - Injection site haemorrhage [Not Recovered/Not Resolved]
  - Injection site bruising [Not Recovered/Not Resolved]
  - Injection site discharge [Not Recovered/Not Resolved]
  - Product dispensing error [Unknown]
  - Product contamination [Unknown]
  - Device leakage [Unknown]
  - Incorrect dose administered by device [Unknown]
  - Product storage error [Unknown]

NARRATIVE: CASE EVENT DATE: 20241218
